FAERS Safety Report 7056576-1 (Version None)
Quarter: 2010Q4

REPORT INFORMATION
  Report Type: 
  Country: None (occurrence: None)
  Receive Date: 20101021
  Receipt Date: 20101019
  Transmission Date: 20110411
  Serious: Yes (Death, Hospitalization)
  Sender: FDA-Public Use
  Company Number: SE-MERCK-1010SWE00020

PATIENT
  Sex: Male

DRUGS (2)
  1. JANUVIA [Suspect]
     Route: 048
     Dates: start: 20080101
  2. METFORMIN [Concomitant]
     Route: 065

REACTIONS (1)
  - ORGAN FAILURE [None]
